FAERS Safety Report 9003100 (Version 1)
Quarter: 2013Q1

REPORT INFORMATION
  Report Type: Spontaneous
  Country: US (occurrence: US)
  Receive Date: 20130108
  Receipt Date: 20130108
  Transmission Date: 20140127
  Serious: Yes (Other)
  Sender: FDA-Public Use
  Company Number: US-009507513-1301USA001859

PATIENT
  Age: 26 Year
  Sex: Male

DRUGS (2)
  1. SINGULAIR [Suspect]
     Indication: ASTHMA
     Dosage: 1 PUFF TWICE PER DAY RESPIRATORY (INHALATION)
  2. ADVAIR [Suspect]

REACTIONS (2)
  - Retinal disorder [Unknown]
  - Blindness [Unknown]
